FAERS Safety Report 12601743 (Version 1)
Quarter: 2016Q3

REPORT INFORMATION
  Report Type: Spontaneous
  Country: US (occurrence: None)
  Receive Date: 20160727
  Receipt Date: 20160727
  Transmission Date: 20161109
  Serious: Yes (Life-Threatening, Other)
  Sender: FDA-Public Use
  Company Number: None

PATIENT
  Age: 64 Year
  Sex: Female
  Weight: 99.79 kg

DRUGS (6)
  1. HYDROCHLOROTHIAZIDE. [Concomitant]
     Active Substance: HYDROCHLOROTHIAZIDE
  2. TEGRETOL [Concomitant]
     Active Substance: CARBAMAZEPINE
  3. LISINOPRIL 5 MG TABLET OFY 30 SUBSTITUED FOR ZESTRIL (SOLCO HEALTH) [Suspect]
     Active Substance: LISINOPRIL
     Indication: HYPERTENSION
     Route: 048
     Dates: start: 20160712, end: 20160719
  4. ASPIRIN. [Concomitant]
     Active Substance: ASPIRIN
  5. RISPERDAL [Concomitant]
     Active Substance: RISPERIDONE
  6. GLIPIZIDE. [Concomitant]
     Active Substance: GLIPIZIDE

REACTIONS (6)
  - Malaise [None]
  - Peripheral swelling [None]
  - Salivary hypersecretion [None]
  - Dizziness [None]
  - Dyspnoea [None]
  - Choking [None]

NARRATIVE: CASE EVENT DATE: 20160712
